FAERS Safety Report 16644989 (Version 6)
Quarter: 2020Q1

REPORT INFORMATION
  Report Type: Spontaneous
  Country: US (occurrence: US)
  Receive Date: 20190729
  Receipt Date: 20200324
  Transmission Date: 20200409
  Serious: No
  Sender: FDA-Public Use
  Company Number: US-SA-2019SA202795

PATIENT
  Age: 62 Year
  Sex: Female

DRUGS (1)
  1. KEVZARA [Suspect]
     Active Substance: SARILUMAB
     Indication: PRODUCT USED FOR UNKNOWN INDICATION
     Dosage: 200 MG, QOW
     Route: 058
     Dates: start: 201906

REACTIONS (12)
  - Ear pain [Unknown]
  - Facial pain [Unknown]
  - Eye infection [Unknown]
  - Weight increased [Unknown]
  - Eye pain [Unknown]
  - Nasopharyngitis [Recovering/Resolving]
  - Alopecia [Unknown]
  - Toothache [Unknown]
  - Mass [Unknown]
  - Erythema [Unknown]
  - Aphonia [Unknown]
  - Rash [Unknown]

NARRATIVE: CASE EVENT DATE: 2019
